FAERS Safety Report 6175877-2 (Version None)
Quarter: 2009Q2

REPORT INFORMATION
  Report Type: 
  Country: None (occurrence: None)
  Receive Date: 20090501
  Receipt Date: 20090427
  Transmission Date: 20091009
  Serious: Yes (Other)
  Sender: FDA-Public Use
  Company Number: AT-ASTRAZENECA-2009PK01161

PATIENT
  Age: 23802 Day
  Sex: Female
  Weight: 75 kg

DRUGS (4)
  1. ARIMIDEX [Suspect]
     Indication: BREAST CANCER FEMALE
     Route: 048
     Dates: start: 20080801, end: 20090301
  2. EURHYROX [Concomitant]
     Indication: THYROID HORMONE REPLACEMENT THERAPY
     Route: 048
  3. CITALOPRAM HYDROBROMIDE [Concomitant]
     Indication: DEPRESSION
     Route: 048
  4. MODURETIC 5-50 [Concomitant]
     Indication: HYPERTENSION
     Dosage: (0.5-1TBL/DAY) HALF TO ONE TABLET PER DAY - PRO RE NATA (PRN)
     Route: 048

REACTIONS (1)
  - SPINAL DEFORMITY [None]
